FAERS Safety Report 15324904 (Version 1)
Quarter: 2018Q3

REPORT INFORMATION
  Report Type: Spontaneous
  Country: US (occurrence: US)
  Receive Date: 20180822
  Receipt Date: 20180822
  Transmission Date: 20181010
  Serious: Yes (Hospitalization)
  Sender: FDA-Public Use
  Company Number: None

PATIENT
  Age: 76 Year
  Sex: Female
  Weight: 76.5 kg

DRUGS (5)
  1. NIACIN. [Concomitant]
     Active Substance: NIACIN
  2. CEPHALEXIN 500MM CAPSULES [Suspect]
     Active Substance: CEPHALEXIN
     Indication: INFECTION
     Dosage: ?          QUANTITY:1 CAPSULE(S);?
     Route: 048
     Dates: start: 20180805, end: 20180805
  3. SIMVASTATIN. [Suspect]
     Active Substance: SIMVASTATIN
  4. KRILL OIL [Concomitant]
     Active Substance: DIETARY SUPPLEMENT
  5. BIOTIB [Concomitant]

REACTIONS (5)
  - Loss of consciousness [None]
  - Laceration [None]
  - Hot flush [None]
  - Diarrhoea [None]
  - Paraesthesia oral [None]

NARRATIVE: CASE EVENT DATE: 20180805
